FAERS Safety Report 5153583-0 (Version None)
Quarter: 2006Q4

REPORT INFORMATION
  Report Type: 
  Country: None (occurrence: None)
  Receive Date: 20061113
  Receipt Date: 20061031
  Transmission Date: 20070319
  Serious: Yes (Other)
  Sender: FDA-Public Use
  Company Number: 2006132759

PATIENT
  Age: 65 Year
  Sex: Female
  Weight: 65 kg

DRUGS (5)
  1. LYRICA [Suspect]
     Indication: FIBROMYALGIA
     Dosage: 75 MG (75 MG, 1 IN 1 D),  ORAL
     Route: 048
     Dates: start: 20061023
  2. LANTANON (MIANSERIN HYDROCHLORIDE) [Concomitant]
  3. VALIUM [Concomitant]
  4. AIRTAL (ACECLOFENAC) [Concomitant]
  5. TERIPARATIDE (TERIPARATIDE) [Concomitant]

REACTIONS (5)
  - ARTHRALGIA [None]
  - DIZZINESS [None]
  - EYE PAIN [None]
  - EYE SWELLING [None]
  - RESPIRATORY DISTRESS [None]
